FAERS Safety Report 26137152 (Version 1)
Quarter: 2025Q4

REPORT INFORMATION
  Report Type: Spontaneous
  Country: CA (occurrence: CA)
  Receive Date: 20251209
  Receipt Date: 20251209
  Transmission Date: 20260117
  Serious: Yes (Other)
  Sender: VERTEX
  Company Number: CA-VERTEX PHARMACEUTICALS-2025-020598

PATIENT

DRUGS (1)
  1. ELEXACAFTOR\IVACAFTOR\TEZACAFTOR [Suspect]
     Active Substance: ELEXACAFTOR\IVACAFTOR\TEZACAFTOR
     Indication: Cystic fibrosis
     Dosage: UNKNOWN DOSAGE REGIMEN

REACTIONS (8)
  - Nausea [Unknown]
  - Vomiting [Unknown]
  - Infective pulmonary exacerbation of cystic fibrosis [Unknown]
  - Exposure during pregnancy [Unknown]
  - Abortion spontaneous [Unknown]
  - Postpartum haemorrhage [Unknown]
  - Preterm premature rupture of membranes [Unknown]
  - Premature delivery [Unknown]
